FAERS Safety Report 19616161 (Version 1)
Quarter: 2021Q3

REPORT INFORMATION
  Report Type: Spontaneous
  Country: US (occurrence: US)
  Receive Date: 20210727
  Receipt Date: 20210727
  Transmission Date: 20211014
  Serious: No
  Sender: FDA-Public Use
  Company Number: US-ABBVIE-21K-163-3825489-00

PATIENT
  Sex: Female

DRUGS (1)
  1. SYNTHROID [Suspect]
     Active Substance: LEVOTHYROXINE SODIUM
     Indication: PRODUCT USED FOR UNKNOWN INDICATION
     Route: 048

REACTIONS (7)
  - Gastrointestinal disorder [Unknown]
  - Dizziness [Unknown]
  - Hyperthyroidism [Unknown]
  - Illness [Unknown]
  - Weight gain poor [Unknown]
  - Heart rate increased [Unknown]
  - Insomnia [Unknown]
